FAERS Safety Report 7869375-5 (Version None)
Quarter: 2011Q4

REPORT INFORMATION
  Report Type: 
  Country: None (occurrence: None)
  Receive Date: 20111028
  Receipt Date: 20110103
  Transmission Date: 20120403
  Serious: No
  Sender: FDA-Public Use
  Company Number: US-AMGEN-USASP2011000143

PATIENT
  Age: 59 Year
  Sex: Female

DRUGS (1)
  1. ENBREL [Suspect]
     Indication: RHEUMATOID ARTHRITIS
     Dates: start: 20090527

REACTIONS (5)
  - ONYCHOMYCOSIS [None]
  - PHARYNGEAL ERYTHEMA [None]
  - EAR INFECTION [None]
  - OROPHARYNGEAL PAIN [None]
  - SINUSITIS [None]
